FAERS Safety Report 4908041-2 (Version None)
Quarter: 2006Q1

REPORT INFORMATION
  Report Type: 
  Country: None (occurrence: None)
  Receive Date: 20060208
  Receipt Date: 20060127
  Transmission Date: 20060701
  Serious: Yes (Life-Threatening)
  Sender: FDA-Public Use
  Company Number: FABR-11366

PATIENT
  Age: 49 Year
  Sex: Male
  Weight: 54 kg

DRUGS (5)
  1. FABRAZYME [Suspect]
     Indication: FABRY'S DISEASE
     Dosage: 55 MG Q2WKS IV
     Route: 042
     Dates: start: 20041218, end: 20060107
  2. PREDNISOLONE [Concomitant]
  3. HYDROXYZINE PAMOATE [Concomitant]
  4. IBUPROFEN [Concomitant]
  5. HYDROCORTISONE SODIUM SUCCINATE [Concomitant]

REACTIONS (2)
  - ANAPHYLACTIC SHOCK [None]
  - INFUSION RELATED REACTION [None]
